FAERS Safety Report 18606976 (Version 4)
Quarter: 2021Q3

REPORT INFORMATION
  Report Type: Report from Study
  Country: CR (occurrence: CR)
  Receive Date: 20201211
  Receipt Date: 20210817
  Transmission Date: 20211014
  Serious: No
  Sender: FDA-Public Use
  Company Number: PHHY2019CR198367

PATIENT
  Sex: Male
  Weight: 68 kg

DRUGS (5)
  1. DIABECONTROL [Concomitant]
     Active Substance: CHLORPROPAMIDE
     Indication: PROPHYLAXIS
     Route: 065
  2. OMEGA 3 [Concomitant]
     Active Substance: OMEGA-3 FATTY ACIDS
     Indication: PRODUCT USED FOR UNKNOWN INDICATION
     Route: 065
  3. CO?DIOVAN [Suspect]
     Active Substance: HYDROCHLOROTHIAZIDE\VALSARTAN
     Indication: HYPERTENSION
     Dosage: 0.5 DF (160/12.5 MG)
     Route: 065
  4. CO?DIOVAN [Suspect]
     Active Substance: HYDROCHLOROTHIAZIDE\VALSARTAN
     Dosage: UNK (160/25 MG)
     Route: 065
  5. CO?DIOVAN [Suspect]
     Active Substance: HYDROCHLOROTHIAZIDE\VALSARTAN
     Dosage: UNK 160/12.5 MG (SOMETIMES HE TAKES 160/25 MG WHEN HE CANNOT FIND 160/12.5 MG IN THE PHARMACY)
     Route: 065

REACTIONS (7)
  - Oesophagitis [Unknown]
  - Acidosis [Recovered/Resolved]
  - Product prescribing error [Unknown]
  - Off label use [Unknown]
  - Pollakiuria [Unknown]
  - Inappropriate schedule of product administration [Unknown]
  - Incorrect dose administered [Unknown]
